FAERS Safety Report 5004733-8 (Version None)
Quarter: 2006Q1

REPORT INFORMATION
  Report Type: 
  Country: None (occurrence: None)
  Receive Date: 20060321
  Receipt Date: 20060207
  Transmission Date: 20060701
  Serious: No
  Sender: FDA-Public Use
  Company Number: 2006US000321

PATIENT
  Age: 49 Year
  Sex: Female

DRUGS (21)
  1. VESICARE [Suspect]
     Indication: URGE INCONTINENCE
     Dosage: 5 MG, UID/QD, ORAL
     Route: 048
     Dates: start: 20060112
  2. PREDNISONE TAB [Suspect]
  3. CELEXA [Concomitant]
  4. TYLENOL (CAPLET) [Concomitant]
  5. AMBIEN [Concomitant]
  6. NEURONTIN [Concomitant]
  7. NORVASC [Concomitant]
  8. NISTATIN (NYSTATIN) [Concomitant]
  9. DIFLUCAN [Concomitant]
  10. YASMIN [Concomitant]
  11. ZELNORM [Concomitant]
  12. IBUPROFEN [Concomitant]
  13. PREVACID [Concomitant]
  14. CALCIUM (CALCIUM) [Concomitant]
  15. LYSINE (LYSINE) [Concomitant]
  16. FOLIC ACID [Concomitant]
  17. ASPIRIN [Concomitant]
  18. COLACE (DOCUSATE SODIUM) [Concomitant]
  19. BIOTIN [Concomitant]
  20. CITRUCEL (METHYLCELLULOSE) [Concomitant]
  21. FOSAMAX [Concomitant]

REACTIONS (1)
  - PRURITUS [None]
